FAERS Safety Report 9354008 (Version 1)
Quarter: 2013Q2

REPORT INFORMATION
  Report Type: Spontaneous
  Country: US (occurrence: US)
  Receive Date: 20130618
  Receipt Date: 20130618
  Transmission Date: 20140414
  Serious: Yes (Other)
  Sender: FDA-Public Use
  Company Number: US-INCYTE CORPORATION-2013IN001238

PATIENT
  Age: 75 Year
  Sex: Female

DRUGS (4)
  1. JAKAFI [Suspect]
     Indication: MYELOFIBROSIS
     Dosage: 5 MG, BID
     Route: 048
     Dates: start: 2012
  2. CYMBALTA [Concomitant]
  3. PRADAXA [Concomitant]
  4. LISINOPRIL [Concomitant]

REACTIONS (1)
  - Stress fracture [Not Recovered/Not Resolved]
